FAERS Safety Report 8591336-1 (Version None)
Quarter: 2012Q3

REPORT INFORMATION
  Report Type: 
  Country: None (occurrence: None)
  Receive Date: 20120814
  Receipt Date: 20120803
  Transmission Date: 20120928
  Serious: Yes (Other)
  Sender: FDA-Public Use
  Company Number: JP-BRISTOL-MYERS SQUIBB COMPANY-16807216

PATIENT
  Age: 34 Year
  Sex: Female

DRUGS (7)
  1. ABILIFY [Suspect]
     Indication: DELUSIONAL PERCEPTION
     Dosage: 30MG:12MAR-1AP10(18D),24MG:11MAR10,2AP-19AP10(18D)23APR-10SEP,21MG:20AP10-22APR10(3D),11SP-15OC(35D
     Route: 048
     Dates: start: 20100311
  2. BIPERIDEN HYDROCHLORIDE TAB [Concomitant]
     Dosage: TABS
     Dates: start: 20100625, end: 20120608
  3. ABILIFY [Suspect]
     Indication: AGGRESSION
     Dosage: 30MG:12MAR-1AP10(18D),24MG:11MAR10,2AP-19AP10(18D)23APR-10SEP,21MG:20AP10-22APR10(3D),11SP-15OC(35D
     Route: 048
     Dates: start: 20100311
  4. ABILIFY [Suspect]
     Indication: HALLUCINATION, AUDITORY
     Dosage: 30MG:12MAR-1AP10(18D),24MG:11MAR10,2AP-19AP10(18D)23APR-10SEP,21MG:20AP10-22APR10(3D),11SP-15OC(35D
     Route: 048
     Dates: start: 20100311
  5. ABILIFY [Suspect]
     Indication: HALLUCINATION
     Dosage: 30MG:12MAR-1AP10(18D),24MG:11MAR10,2AP-19AP10(18D)23APR-10SEP,21MG:20AP10-22APR10(3D),11SP-15OC(35D
     Route: 048
     Dates: start: 20100311
  6. ABILIFY [Suspect]
     Indication: DELUSION
     Dosage: 30MG:12MAR-1AP10(18D),24MG:11MAR10,2AP-19AP10(18D)23APR-10SEP,21MG:20AP10-22APR10(3D),11SP-15OC(35D
     Route: 048
     Dates: start: 20100311
  7. LITHIUM CARBONATE [Suspect]
     Indication: LOGORRHOEA
     Route: 048
     Dates: start: 20100510, end: 20120608

REACTIONS (2)
  - PREGNANCY [None]
  - ABORTION SPONTANEOUS [None]
